FAERS Safety Report 25871687 (Version 1)
Quarter: 2025Q4

REPORT INFORMATION
  Report Type: Spontaneous
  Country: EU (occurrence: EU)
  Receive Date: 20251001
  Receipt Date: 20251001
  Transmission Date: 20260117
  Serious: Yes (Hospitalization, Other)
  Sender: GENUS LIFESCIENCES
  Company Number: EU-Genus_Lifesciences-USA-ALL0580202500138

PATIENT
  Age: 34 Year
  Sex: Female
  Weight: 118 kg

DRUGS (11)
  1. ISONIAZID [Suspect]
     Active Substance: ISONIAZID
     Indication: Tuberculosis
     Route: 048
     Dates: start: 2025, end: 2025
  2. ISONIAZID [Suspect]
     Active Substance: ISONIAZID
     Route: 048
     Dates: start: 2025, end: 2025
  3. SECUKINUMAB [Suspect]
     Active Substance: SECUKINUMAB
     Indication: Psoriasis
     Dosage: UNKNOWN
     Dates: start: 2025, end: 2025
  4. METHOTREXATE [Concomitant]
     Active Substance: METHOTREXATE
     Indication: Psoriasis
     Dosage: UNKNOWN
     Dates: end: 2025
  5. METHOTREXATE [Concomitant]
     Active Substance: METHOTREXATE
     Dosage: UNKNOWN
     Dates: start: 2025
  6. RIFAMPIN [Concomitant]
     Active Substance: RIFAMPIN
     Indication: Tuberculosis
     Dates: start: 2025, end: 2025
  7. RIFAMPIN [Concomitant]
     Active Substance: RIFAMPIN
     Dates: start: 2025, end: 2025
  8. PYRAZINAMIDE [Concomitant]
     Active Substance: PYRAZINAMIDE
     Indication: Tuberculosis
     Dates: start: 2025, end: 2025
  9. PYRAZINAMIDE [Concomitant]
     Active Substance: PYRAZINAMIDE
     Dates: start: 2025, end: 2025
  10. ETHAMBUTOL [Concomitant]
     Active Substance: ETHAMBUTOL HYDROCHLORIDE
     Indication: Tuberculosis
     Dates: start: 2025, end: 2025
  11. ETHAMBUTOL [Concomitant]
     Active Substance: ETHAMBUTOL HYDROCHLORIDE
     Dates: start: 2025, end: 2025

REACTIONS (1)
  - Drug-induced liver injury [Recovered/Resolved]

NARRATIVE: CASE EVENT DATE: 20250101
